FAERS Safety Report 19385880 (Version 1)
Quarter: 2021Q2

REPORT INFORMATION
  Report Type: Spontaneous
  Country: NL (occurrence: NL)
  Receive Date: 20210608
  Receipt Date: 20210608
  Transmission Date: 20210717
  Serious: Yes (Hospitalization, Other)
  Sender: FDA-Public Use
  Company Number: NL-TEVA-2021-NL-1919521

PATIENT
  Age: 64 Year
  Sex: Male
  Weight: 80 kg

DRUGS (19)
  1. CARBOMEER OOGGEL 3MG/G (CARBOMEER 974P) / DRY EYE GEL OOGGEL TUBE 10G [Concomitant]
     Dosage: 3 MG/G (MILLIGRAM PER GRAM) , THERAPY START DATE AND END DATE : ASKU
  2. PAROXETINE TABLET 20MG / BRAND NAME NOT SPECIFIED [Concomitant]
     Active Substance: PAROXETINE
     Dosage: 20 MG (MILLIGRAM) , THERAPY START DATE AND END DATE : ASKU
  3. AMLODIPINE TABLET   5MG / BRAND NAME NOT SPECIFIED [Concomitant]
     Active Substance: AMLODIPINE BESYLATE
     Dosage: 5 MG (MILLIGRAM) , THERAPY START DATE AND END DATE : ASKU
  4. MESALAZINE ZETPIL 500MG / BRAND NAME NOT SPECIFIED [Concomitant]
     Dosage: 500 MG (MILLIGRAM) ,THERAPY START DATE AND END DATE : ASKU
  5. SUCRALFAAT SUSP ORAAL 1G / BRAND NAME NOT SPECIFIED [Concomitant]
     Dosage: 1 G (GRAM) , THERAPY START DATE AND END DATE : ASKU
  6. BUPRENORFINE PLEISTER  5UG/UUR / BRAND NAME NOT SPECIFIED [Concomitant]
     Dosage: PLASTER, 20 UG (MICROGRAMS) PER HOUR , THERAPY START DATE AND END DATE : ASKU
  7. CARBASALAATCALCIUM BRUISTABLET  38MG / ASCAL BRISPER BRUISTABLET 38MG [Concomitant]
     Dosage: 38 MG (MILLIGRAM) , THERAPY START DATE AND END DATE : ASKU
  8. FOLIUMZUUR TABLET 5MG / BRAND NAME NOT SPECIFIED [Concomitant]
     Dosage: 5 MG (MILLIGRAM) , THERAPY START DATE AND END DATE : ASKU
  9. LISINOPRIL TABLET 10MG / BRAND NAME NOT SPECIFIED [Concomitant]
     Active Substance: LISINOPRIL
     Dosage: 10 MG (MILLIGRAM) , THERAPY START DATE AND END DATE : ASKU
  10. BUPRENORFINE PLEISTER  5UG/UUR / BRAND NAME NOT SPECIFIED [Concomitant]
     Dosage: PLASTER, 5 UG (MICROGRAMS) PER HOUR ,THERAPY START DATE AND END DATE : ASKU
  11. PREGABALINE CAPSULE  75MG / BRAND NAME NOT SPECIFIED [Concomitant]
     Dosage: 75 MG (MILLIGRAM) , THERAPY START DATE AND END DATE : ASKU
  12. METHOTREXAAT TABLET  2,5MG / BRAND NAME NOT SPECIFIED [Suspect]
     Active Substance: METHOTREXATE SODIUM
     Indication: SARCOIDOSIS
     Dosage: 2 PIECES EVERY FRIDAY , THERAPY END DATE : ASKU
     Dates: start: 20210115
  13. IPRATROPIUM AEROSOL 20UG/DO / BRAND NAME NOT SPECIFIED [Concomitant]
     Dosage: AEROSOL, 20 UG/DOSE (MICROGRAMS PER DOSE) , THERAPY START DATE AND END DATE : ASKU
  14. ESOMEPRAZOL CAPSULE MSR 40MG / BRAND NAME NOT SPECIFIED [Concomitant]
     Active Substance: ESOMEPRAZOLE
     Dosage: 40 MG (MILLIGRAM) , THERAPY START DATE AND END DATE : ASKU
  15. BUDESONIDE/FORMOTEROL AEROSOL 200/6UG/DO / BRAND NAME NOT SPECIFIED [Concomitant]
     Dosage: AEROSOL, 200/6 UG/DOSE (MICROGRAMS PER DOSE) , THERAPY START DATE AND END DATE : ASKU
  16. ALENDRONINEZUUR/COLECALCIFEROL TABLET 70MG/2800IE / ADROVANCE TABLET 7 [Concomitant]
     Dosage: 70 MG (MILLIGRAMS)/2800 UNITS, THERAPY START DATE AND END DATE : ASKU
  17. PREDNISOLON TABLET  5MG / BRAND NAME NOT SPECIFIED [Suspect]
     Active Substance: PREDNISOLONE
     Indication: SARCOIDOSIS
     Dosage: 1 DOSAGE FORMS DAILY; THERAPY END DATE : ASKU
     Dates: start: 20210113
  18. BACLOFEN TABLET 10MG / BRAND NAME NOT SPECIFIED [Concomitant]
     Active Substance: BACLOFEN
     Dosage: 10 MG (MILLIGRAM) ,THERAPY START DATE AND END DATE : ASKU
  19. ISOSORBIDEDINITRAAT VASELINECREME 10MG/G / BRAND NAME NOT SPECIFIED [Concomitant]
     Dosage: FOR RECTAL USE ,  10 MG/G (MILLIGRAM PER GRAM) , THERAPY START DATE AND END DATE : ASKU

REACTIONS (1)
  - Pulmonary embolism [Not Recovered/Not Resolved]

NARRATIVE: CASE EVENT DATE: 20210517
